FAERS Safety Report 4773812-2 (Version None)
Quarter: 2005Q3

REPORT INFORMATION
  Report Type: 
  Country: None (occurrence: None)
  Receive Date: 20050920
  Receipt Date: 20050913
  Transmission Date: 20060218
  Serious: Yes (Other)
  Sender: FDA-Public Use
  Company Number: AR-GLAXOSMITHKLINE-A0574682A

PATIENT
  Age: 60 Year
  Sex: Female

DRUGS (3)
  1. LAMICTAL [Suspect]
     Indication: BIPOLAR DISORDER
     Route: 048
     Dates: start: 20050517
  2. LITHIUM [Concomitant]
     Dosage: 900MG PER DAY
  3. VENLAFAXINE [Concomitant]
     Dosage: 150MG PER DAY

REACTIONS (1)
  - RETINAL DETACHMENT [None]
